FAERS Safety Report 25341218 (Version 1)
Quarter: 2025Q2

REPORT INFORMATION
  Report Type: Spontaneous
  Country: TR (occurrence: TR)
  Receive Date: 20250521
  Receipt Date: 20250521
  Transmission Date: 20250717
  Serious: Yes (Other)
  Sender: RANBAXY
  Company Number: TR-SUN PHARMACEUTICAL INDUSTRIES LTD-2025R1-507736

PATIENT
  Age: 16 Year
  Sex: Female

DRUGS (4)
  1. OLANZAPINE [Suspect]
     Active Substance: OLANZAPINE
     Indication: Depressive symptom
     Route: 065
  2. OLANZAPINE [Suspect]
     Active Substance: OLANZAPINE
     Indication: Anxiety
  3. RISPERIDONE [Suspect]
     Active Substance: RISPERIDONE
     Indication: Depressive symptom
     Dosage: 3 MILLIGRAM, DAILY
     Route: 065
  4. RISPERIDONE [Suspect]
     Active Substance: RISPERIDONE
     Indication: Anxiety

REACTIONS (1)
  - Therapy non-responder [Unknown]
